FAERS Safety Report 6753931-1 (Version None)
Quarter: 2010Q2

REPORT INFORMATION
  Report Type: 
  Country: None (occurrence: None)
  Receive Date: 20100603
  Receipt Date: 20100526
  Transmission Date: 20101027
  Serious: Yes (Death, Hospitalization)
  Sender: FDA-Public Use
  Company Number: A0788082A

PATIENT
  Age: 59 Year
  Sex: Male

DRUGS (14)
  1. AVANDIA [Suspect]
     Indication: DIABETES MELLITUS
     Dosage: 8MG PER DAY
     Route: 048
     Dates: start: 19990101, end: 20051123
  2. LIPITOR [Concomitant]
  3. LANTUS [Concomitant]
  4. OXYCONTIN [Concomitant]
  5. PERCOCET [Concomitant]
  6. PREVACID [Concomitant]
  7. GLYBURIDE [Concomitant]
  8. KETOCONAZOLE [Concomitant]
  9. NEURONTIN [Concomitant]
  10. METOPROLOL TARTRATE [Concomitant]
  11. METFORMIN [Concomitant]
  12. CPAP [Concomitant]
  13. PIROXICAM [Concomitant]
  14. METOLAZONE [Concomitant]

REACTIONS (9)
  - ASTHMA [None]
  - CARDIAC FAILURE CONGESTIVE [None]
  - CHRONIC OBSTRUCTIVE PULMONARY DISEASE [None]
  - CORONARY ARTERY DISEASE [None]
  - DIABETES MELLITUS [None]
  - PERIPHERAL VASCULAR DISORDER [None]
  - RENAL FAILURE [None]
  - RESPIRATORY FAILURE [None]
  - SLEEP APNOEA SYNDROME [None]
